FAERS Safety Report 23748665 (Version 1)
Quarter: 2024Q2

REPORT INFORMATION
  Report Type: Spontaneous
  Country: PT (occurrence: PT)
  Receive Date: 20240416
  Receipt Date: 20240416
  Transmission Date: 20240716
  Serious: Yes (Death)
  Sender: FDA-Public Use
  Company Number: PT-ELI_LILLY_AND_COMPANY-PT202403013848

PATIENT

DRUGS (1)
  1. FLUOXETINE [Suspect]
     Active Substance: FLUOXETINE HYDROCHLORIDE
     Indication: Product used for unknown indication
     Dosage: UNK UNK, UNKNOWN
     Route: 065

REACTIONS (18)
  - Dyspnoea [Fatal]
  - Eye pain [Fatal]
  - Ascites [Fatal]
  - Pruritus [Fatal]
  - Chills [Fatal]
  - Haematemesis [Fatal]
  - Fall [Fatal]
  - Amaurosis fugax [Fatal]
  - Coma [Fatal]
  - Abdominal pain [Fatal]
  - Insomnia [Fatal]
  - Sepsis [Fatal]
  - Altered state of consciousness [Fatal]
  - Nausea [Fatal]
  - Haemorrhagic stroke [Fatal]
  - Head discomfort [Fatal]
  - Cardio-respiratory arrest [Fatal]
  - Ocular discomfort [Fatal]
